FAERS Safety Report 25505355 (Version 1)
Quarter: 2025Q3

REPORT INFORMATION
  Report Type: Spontaneous
  Country: US (occurrence: US)
  Receive Date: 20250702
  Receipt Date: 20250702
  Transmission Date: 20251021
  Serious: No
  Sender: Haleon PLC
  Company Number: US-HALEON-2250427

PATIENT
  Age: 83 Year
  Sex: Female

DRUGS (1)
  1. TUMS [Suspect]
     Active Substance: CALCIUM CARBONATE
     Indication: Gastrooesophageal reflux disease

REACTIONS (3)
  - Drug effective for unapproved indication [Unknown]
  - Incorrect dose administered [Unknown]
  - Product use in unapproved indication [Unknown]
